FAERS Safety Report 26152400 (Version 1)
Quarter: 2025Q4

REPORT INFORMATION
  Report Type: Report from Study
  Country: US (occurrence: US)
  Receive Date: 20251214
  Receipt Date: 20251214
  Transmission Date: 20260118
  Serious: Yes (Other)
  Sender: TEVA
  Company Number: US-TEVA-VS-3400764

PATIENT
  Age: 62 Year
  Sex: Female

DRUGS (1)
  1. AUSTEDO [Suspect]
     Active Substance: DEUTETRABENAZINE
     Indication: Dyskinesia
     Route: 065

REACTIONS (2)
  - Syncope [Unknown]
  - Fall [Unknown]

NARRATIVE: CASE EVENT DATE: 20250101
